FAERS Safety Report 19508658 (Version 2)
Quarter: 2023Q1

REPORT INFORMATION
  Report Type: Spontaneous
  Country: DE (occurrence: DE)
  Receive Date: 20210708
  Receipt Date: 20230117
  Transmission Date: 20230417
  Serious: Yes (Hospitalization, Other)
  Sender: FDA-Public Use
  Company Number: None

PATIENT
  Age: 75 Year
  Sex: Male
  Weight: 73 kg

DRUGS (23)
  1. RITUXIMAB [Suspect]
     Active Substance: RITUXIMAB
     Dosage: ACCORDING TO SCHEDULE
     Route: 042
  2. BORTEZOMIB [Suspect]
     Active Substance: BORTEZOMIB
     Dosage: ACCORDING TO SCHEDULE
     Route: 042
  3. CYCLOPHOSPHAMIDE [Suspect]
     Active Substance: CYCLOPHOSPHAMIDE
     Dosage: ACCORDING TO SCHEDULE
     Route: 042
  4. DOXORUBICIN [Suspect]
     Active Substance: DOXORUBICIN
     Dosage: ACCORDING TO SCHEDULE
     Route: 042
  5. LIPEGFILGRASTIM [Suspect]
     Active Substance: LIPEGFILGRASTIM
     Dosage: ACCORDING TO SCHEDULE
     Route: 042
  6. PREDNISOLONE [Suspect]
     Active Substance: PREDNISOLONE
     Dosage: ACCORDING TO SCHEDULE
     Route: 042
  7. ASPIRIN [Concomitant]
     Active Substance: ASPIRIN
     Dosage: 100 MG, 1X/DAY
     Route: 048
  8. FUROSEMIDE [Concomitant]
     Active Substance: FUROSEMIDE
     Dosage: 40 MG, 1X/DAY
     Route: 048
  9. SIMVASTATIN [Concomitant]
     Active Substance: SIMVASTATIN
     Dosage: 20 MG, 1X/DAY
     Route: 048
  10. SULFAMETHOXAZOLE\TRIMETHOPRIM [Concomitant]
     Active Substance: SULFAMETHOXAZOLE\TRIMETHOPRIM
     Dosage: 960 MG MONDAY, WEDNESDAY, FRIDAY
     Route: 048
  11. HERBALS [Concomitant]
     Active Substance: HERBALS
     Dosage: 3.25/5 G WHEN REQUIRED 3 TIMES 1 SACHET PER DAY
     Route: 048
  12. BISOPROLOL [Concomitant]
     Active Substance: BISOPROLOL
     Dosage: 5 MG, 1X/DAY
     Route: 048
  13. AMPHOTERICIN B [Concomitant]
     Active Substance: AMPHOTERICIN B
     Dosage: 1 DF, 4X/DAY
     Route: 048
  14. PANTOPRAZOLE [Concomitant]
     Active Substance: PANTOPRAZOLE
     Dosage: 40 MG, 1X/DAY
     Route: 048
  15. METAMIZOLE [Concomitant]
     Active Substance: METAMIZOLE
     Dosage: 500 MG, 4X/DAY
     Route: 048
  16. ALLOPURINOL [Concomitant]
     Active Substance: ALLOPURINOL
     Dosage: 300 MG, 1X/DAY
     Route: 048
  17. MORPHINE [Concomitant]
     Active Substance: MORPHINE
     Dosage: 20 MG IN THE MORNING AND 8 DROPS WHEN REQUIRED
     Route: 048
  18. ZOPICLONE [Concomitant]
     Active Substance: ZOPICLONE
     Dosage: 7.5 MG, 1X/DAY
     Route: 048
  19. ACYCLOVIR [Concomitant]
     Active Substance: ACYCLOVIR
     Dosage: 400 MG, 3X/DAY
     Route: 048
  20. RAMIPRIL [Concomitant]
     Active Substance: RAMIPRIL
     Dosage: 5 MG, 2X/DAY
     Route: 048
  21. OLODATEROL HYDROCHLORIDE\TIOTROPIUM BROMIDE MONOHYDRATE [Concomitant]
     Active Substance: OLODATEROL HYDROCHLORIDE\TIOTROPIUM BROMIDE MONOHYDRATE
     Dosage: 2 DF, 1X/DAY
     Route: 055
  22. MUCOFALK APPLE [Concomitant]
     Dosage: 3.25|5 G, IF NECESSARY 3 TIMES A SACHET PER DAY, SACHET
     Route: 048
  23. PANCREATIN [Concomitant]
     Active Substance: PANCRELIPASE
     Dosage: 25000 IE, 2-2-2-0, 3X/DAY
     Route: 048

REACTIONS (16)
  - Infection [Unknown]
  - Pyrexia [Unknown]
  - General physical health deterioration [Unknown]
  - Herpes zoster [Unknown]
  - Headache [Unknown]
  - Platelet count decreased [Unknown]
  - Blood creatinine increased [Unknown]
  - C-reactive protein increased [Unknown]
  - Fibrin D dimer increased [Unknown]
  - Gamma-glutamyltransferase increased [Unknown]
  - Glomerular filtration rate decreased [Unknown]
  - Haematocrit decreased [Unknown]
  - Haemoglobin decreased [Unknown]
  - Prothrombin time shortened [Unknown]
  - Red blood cell count decreased [Unknown]
  - Thrombin time shortened [Unknown]

NARRATIVE: CASE EVENT DATE: 20200704
